FAERS Safety Report 5318636-2 (Version None)
Quarter: 2007Q2

REPORT INFORMATION
  Report Type: 
  Country: None (occurrence: None)
  Receive Date: 20070508
  Receipt Date: 20070427
  Transmission Date: 20071010
  Serious: Yes (Other)
  Sender: FDA-Public Use
  Company Number: PHEH2007US06795

PATIENT
  Age: 76 Year
  Sex: Female

DRUGS (1)
  1. ZELNORM [Suspect]
     Dosage: 3 MG, QHS
     Dates: start: 20061116, end: 20061202

REACTIONS (4)
  - AMNESIA [None]
  - DYSARTHRIA [None]
  - NERVOUS SYSTEM DISORDER [None]
  - VASCULAR DEMENTIA [None]
